FAERS Safety Report 4620113-9 (Version None)
Quarter: 2005Q1

REPORT INFORMATION
  Report Type: 
  Country: None (occurrence: None)
  Receive Date: 20050328
  Receipt Date: 20050318
  Transmission Date: 20050727
  Serious: Yes (Hospitalization)
  Sender: FDA-Public Use
  Company Number: US-AMGEN-US121709

PATIENT
  Sex: Female

DRUGS (16)
  1. ENBREL [Suspect]
     Indication: RHEUMATOID ARTHRITIS
     Route: 058
     Dates: start: 20040701, end: 20050311
  2. METHOTREXATE [Concomitant]
  3. PREDNISONE [Concomitant]
  4. LASIX [Concomitant]
  5. ROCALTROL [Concomitant]
  6. EVISTA [Concomitant]
  7. ALENDRONATE SODIUM [Concomitant]
  8. GLUCOPHAGE [Concomitant]
  9. INSULIN [Concomitant]
  10. NORVASC [Concomitant]
  11. ASPIRIN [Concomitant]
  12. ATENOLOL [Concomitant]
  13. VITAMINS [Concomitant]
  14. NITROGLYCERIN [Concomitant]
  15. PAXIL [Concomitant]
  16. ALLEGRA [Concomitant]

REACTIONS (3)
  - FALL [None]
  - IMPAIRED HEALING [None]
  - LOWER LIMB FRACTURE [None]
